FAERS Safety Report 21077867 (Version 1)
Quarter: 2022Q3

REPORT INFORMATION
  Report Type: Spontaneous
  Country: CN (occurrence: CN)
  Receive Date: 20220713
  Receipt Date: 20220713
  Transmission Date: 20221027
  Serious: Yes (Other)
  Sender: FDA-Public Use
  Company Number: None

PATIENT
  Age: 24 Year
  Sex: Female
  Weight: 65 kg

DRUGS (4)
  1. CYCLOPHOSPHAMIDE [Suspect]
     Active Substance: CYCLOPHOSPHAMIDE
     Indication: Breast cancer female
     Dosage: 920 MG, QD, (DOSAGE FORM: POWDER INJECTION), FIRST CHEMOTHERAPY, CYCLOPHOSPHAMIDE 920 MG + NS 50ML
     Route: 042
     Dates: start: 20220418, end: 20220418
  2. SODIUM CHLORIDE [Suspect]
     Active Substance: SODIUM CHLORIDE
     Indication: Medication dilution
     Dosage: 50 ML, QD, CYCLOPHOSPHAMIDE 920 MG + NS 50ML
     Route: 042
     Dates: start: 20220418, end: 20220418
  3. SODIUM CHLORIDE [Suspect]
     Active Substance: SODIUM CHLORIDE
     Dosage: 100 ML, QD, EPIRUBICIN HYDROCHLORIDE 142 MG + NS 100ML
     Route: 041
     Dates: start: 20220418, end: 20220418
  4. EPIRUBICIN [Suspect]
     Active Substance: EPIRUBICIN
     Indication: Breast cancer female
     Dosage: 142 MG, QD, FIRST CHEMOTHERAPY, EPIRUBICIN HYDROCHLORIDE 142 MG + NS 100ML
     Route: 041
     Dates: start: 20220418, end: 20220418

REACTIONS (2)
  - White blood cell count decreased [Recovered/Resolved]
  - Agranulocytosis [Recovered/Resolved]

NARRATIVE: CASE EVENT DATE: 20220505
